FAERS Safety Report 12764423 (Version 1)
Quarter: 2016Q3

REPORT INFORMATION
  Report Type: Spontaneous
  Country: UG (occurrence: UG)
  Receive Date: 20160920
  Receipt Date: 20160920
  Transmission Date: 20161109
  Serious: Yes (Life-Threatening)
  Sender: FDA-Public Use
  Company Number: UG-GLAXOSMITHKLINE-UG2016GSK137398

PATIENT
  Age: 39 Year
  Sex: Female
  Weight: 130 kg

DRUGS (1)
  1. VOLTFAST [Suspect]
     Active Substance: DICLOFENAC POTASSIUM
     Indication: ARTHRALGIA
     Dosage: 50 MG, SINGLE
     Route: 048
     Dates: start: 20160908, end: 20160908

REACTIONS (1)
  - Pruritus generalised [Unknown]

NARRATIVE: CASE EVENT DATE: 20160915
